FAERS Safety Report 12990836 (Version 1)
Quarter: 2016Q4

REPORT INFORMATION
  Report Type: Spontaneous
  Country: US (occurrence: US)
  Receive Date: 20161130
  Receipt Date: 20161130
  Transmission Date: 20170207
  Serious: No
  Sender: FDA-Public Use
  Company Number: None

PATIENT

DRUGS (1)
  1. RUGBY ARTIFICIAL TEARS (MINERAL OIL\PETROLATUM) [Suspect]
     Active Substance: MINERAL OIL\PETROLATUM

REACTIONS (2)
  - Accidental exposure to product packaging [None]
  - Product closure issue [None]

NARRATIVE: CASE EVENT DATE: 20161129
